FAERS Safety Report 9140366 (Version 1)
Quarter: 2013Q1

REPORT INFORMATION
  Report Type: Spontaneous
  Country: US (occurrence: US)
  Receive Date: 20130305
  Receipt Date: 20130305
  Transmission Date: 20140127
  Serious: Yes (Other)
  Sender: FDA-Public Use
  Company Number: US-BAYER-2013-026906

PATIENT
  Age: 46 Year
  Sex: Female
  Weight: 49.43 kg

DRUGS (10)
  1. BETASERON [Suspect]
     Indication: MULTIPLE SCLEROSIS
     Dosage: 0.25 MG, QOD
     Route: 058
  2. ESTROGEL [Concomitant]
  3. FISH OIL [Concomitant]
  4. ARMOUR THYROID [Concomitant]
     Dosage: 120 MG, UNK
  5. PROMETRIUM [Concomitant]
     Dosage: 100 MG, UNK
  6. VITAMIN D [Concomitant]
     Dosage: 1000 IU, UNK
  7. NIACIN [Concomitant]
     Dosage: 100 MG, UNK
  8. CALCIUM [Concomitant]
     Dosage: 500 MG, UNK
  9. ASPIRIN [Concomitant]
     Dosage: 81 MG, UNK
  10. B-COMPLEX [VITAMIN B NOS] [Concomitant]

REACTIONS (4)
  - Bronchitis [Unknown]
  - Flushing [Unknown]
  - Night sweats [Unknown]
  - Chills [Unknown]
